FAERS Safety Report 8572093-1 (Version None)
Quarter: 2012Q3

REPORT INFORMATION
  Report Type: 
  Country: None (occurrence: None)
  Receive Date: 20120806
  Receipt Date: 20120801
  Transmission Date: 20120928
  Serious: Yes (Hospitalization, Other)
  Sender: FDA-Public Use
  Company Number: PHHY2012FR067010

PATIENT
  Sex: Male

DRUGS (9)
  1. RASILEZ [Suspect]
     Indication: HYPERTENSION
     Dosage: 150 MG, QD
     Route: 048
     Dates: end: 20120531
  2. ACETAMINOPHEN [Concomitant]
  3. LYRICA [Suspect]
     Dosage: 150 MG, BID
     Dates: start: 20120529, end: 20120531
  4. ASPIRIN [Concomitant]
  5. CHLORHEXIDINE GLUCONATE [Concomitant]
  6. BRICANYL [Concomitant]
  7. ATROVENT [Concomitant]
  8. LYRICA [Suspect]
     Indication: CHEST PAIN
     Dosage: 100 MG, BID
     Dates: end: 20120529
  9. OLMESARTAN MEDOXOMIL [Suspect]
     Indication: HYPERTENSION
     Dosage: 40 MG, QD

REACTIONS (7)
  - MUSCULOSKELETAL CHEST PAIN [None]
  - MALAISE [None]
  - VISION BLURRED [None]
  - DIZZINESS [None]
  - CHEST PAIN [None]
  - ORTHOSTATIC HYPOTENSION [None]
  - MUSCULAR WEAKNESS [None]
